FAERS Safety Report 9308226 (Version 3)
Quarter: 2013Q3

REPORT INFORMATION
  Report Type: Spontaneous
  Country: BR (occurrence: BR)
  Receive Date: 20130524
  Receipt Date: 20130815
  Transmission Date: 20140515
  Serious: Yes (Death)
  Sender: FDA-Public Use
  Company Number: BR-ABBOTT-13P-020-1093317-00

PATIENT
  Age: 7 Month
  Sex: Male
  Weight: 6.9 kg

DRUGS (6)
  1. SEVOFLURANE [Suspect]
     Indication: INDUCTION OF ANAESTHESIA
     Dates: start: 20111228
  2. SEVOFLURANE [Suspect]
     Dates: end: 20111228
  3. SUCCINYLCHOLINE [Suspect]
     Indication: HYPOTONIA
  4. ATROPINE [Concomitant]
     Indication: PRODUCT USED FOR UNKNOWN INDICATION
  5. ROCURONIUM [Concomitant]
     Indication: PRODUCT USED FOR UNKNOWN INDICATION
  6. MIDAZOLAM [Concomitant]
     Indication: PRODUCT USED FOR UNKNOWN INDICATION
     Route: 042

REACTIONS (3)
  - Hyperthermia malignant [Fatal]
  - Cardio-respiratory arrest [Fatal]
  - Metabolic acidosis [Fatal]
